FAERS Safety Report 8559331-6 (Version None)
Quarter: 2012Q3

REPORT INFORMATION
  Report Type: 
  Country: None (occurrence: None)
  Receive Date: 20120802
  Receipt Date: 20120730
  Transmission Date: 20120928
  Serious: Yes (Other)
  Sender: FDA-Public Use
  Company Number: PHFR2012GB004254

PATIENT
  Age: 61 Year
  Sex: Male
  Weight: 85.4 kg

DRUGS (1)
  1. NILOTINIB [Suspect]
     Dosage: UNK
     Route: 048
     Dates: start: 20111201, end: 20120701

REACTIONS (4)
  - TESTICULAR PAIN [None]
  - ACQUIRED HYDROCELE [None]
  - TENDERNESS [None]
  - TESTICULAR SWELLING [None]
